FAERS Safety Report 23224969 (Version 1)
Quarter: 2023Q4

REPORT INFORMATION
  Report Type: Other
  Country: CN (occurrence: None)
  Receive Date: 20231124
  Receipt Date: 20231124
  Transmission Date: 20240109
  Serious: Yes (Other)
  Sender: FDA-Public Use
  Company Number: CN-ROCHE-3461112

PATIENT

DRUGS (3)
  1. RITUXIMAB [Suspect]
     Active Substance: RITUXIMAB
     Indication: Diffuse large B-cell lymphoma
     Dosage: DAY 1
     Route: 042
  2. ZANUBRUTINIB [Suspect]
     Active Substance: ZANUBRUTINIB
     Indication: Diffuse large B-cell lymphoma
     Route: 065
  3. LENALIDOMIDE [Suspect]
     Active Substance: LENALIDOMIDE
     Indication: Diffuse large B-cell lymphoma
     Dosage: 1 TO DAY 14
     Route: 065

REACTIONS (16)
  - Granulocytopenia [Unknown]
  - Thrombocytopenia [Unknown]
  - Haemorrhage [Unknown]
  - Thrombosis [Unknown]
  - Gastrointestinal haemorrhage [Unknown]
  - Epistaxis [Unknown]
  - Pneumonia [Unknown]
  - Anaemia [Unknown]
  - Haemorrhage subcutaneous [Unknown]
  - Arrhythmia [Unknown]
  - Syncope [Unknown]
  - Hepatic function abnormal [Unknown]
  - Renal impairment [Unknown]
  - Rash [Unknown]
  - Haematuria [Unknown]
  - Myelosuppression [Unknown]
